FAERS Safety Report 25516953 (Version 2)
Quarter: 2025Q3

REPORT INFORMATION
  Report Type: Spontaneous
  Country: JP (occurrence: JP)
  Receive Date: 20250704
  Receipt Date: 20250902
  Transmission Date: 20251021
  Serious: Yes (Life-Threatening, Hospitalization, Other)
  Sender: ASTELLAS
  Company Number: JP-ASTELLAS-2025-AER-035671

PATIENT
  Age: 44 Year
  Sex: Female

DRUGS (6)
  1. PROGRAF [Suspect]
     Active Substance: TACROLIMUS
     Indication: Renal transplant
     Route: 048
  2. PROGRAF [Suspect]
     Active Substance: TACROLIMUS
     Route: 048
  3. MYCOPHENOLATE MOFETIL [Suspect]
     Active Substance: MYCOPHENOLATE MOFETIL
     Indication: Renal transplant
     Route: 048
  4. MIZORIBINE [Suspect]
     Active Substance: MIZORIBINE
     Indication: Renal transplant
     Route: 048
  5. ROXADUSTAT [Concomitant]
     Active Substance: ROXADUSTAT
     Indication: Product used for unknown indication
     Route: 048
  6. ACETAMINOPHEN [Concomitant]
     Active Substance: ACETAMINOPHEN
     Indication: Product used for unknown indication
     Route: 048

REACTIONS (3)
  - Laryngitis viral [Recovering/Resolving]
  - Laryngeal stenosis [Recovering/Resolving]
  - COVID-19 [Recovering/Resolving]
